FAERS Safety Report 4369597-4 (Version None)
Quarter: 2004Q2

REPORT INFORMATION
  Report Type: 
  Country: None (occurrence: None)
  Receive Date: 20040603
  Receipt Date: 20030813
  Transmission Date: 20050107
  Serious: Yes (Hospitalization, Other)
  Sender: FDA-Public Use
  Company Number: BR-BRISTOL-MYERS SQUIBB COMPANY-12354379

PATIENT
  Age: 40 Year
  Sex: Male
  Weight: 65 kg

DRUGS (4)
  1. STAVUDINE [Suspect]
     Indication: HIV INFECTION
     Dosage: INTERRUPTED ON 04-AUG-2003;RE-STARTED ON 04-SEP-2003.
     Route: 048
     Dates: start: 20000309
  2. EFAVIRENZ CAPS 600 MG [Suspect]
     Indication: HIV INFECTION
     Dosage: INTERRUPTED ON 04-AUG-2003;RE-STARTED ON 04-SEP-2003.
     Route: 048
     Dates: start: 20000309
  3. LAMIVUDINE [Suspect]
     Indication: HIV INFECTION
     Dosage: INTERRUPTED ON 04-AUG-2003;RE-STARTED ON 04-SEP-2003.
     Route: 048
     Dates: start: 20000309
  4. HYDROXYZINE [Concomitant]
     Route: 048
     Dates: start: 20030519, end: 20030715

REACTIONS (2)
  - BLOOD LACTIC ACID INCREASED [None]
  - DIABETIC KETOACIDOSIS [None]
